FAERS Safety Report 7813698-2 (Version None)
Quarter: 2011Q4

REPORT INFORMATION
  Report Type: 
  Country: None (occurrence: None)
  Receive Date: 20111014
  Receipt Date: 20111003
  Transmission Date: 20120403
  Serious: Yes (Other)
  Sender: FDA-Public Use
  Company Number: US-ELI_LILLY_AND_COMPANY-US201004004774

PATIENT
  Sex: Female

DRUGS (8)
  1. FORTEO [Suspect]
     Dosage: 20 UG, DAILY (1/D)
  2. AMLODIPINE [Concomitant]
     Dosage: 10 MG, QD
  3. HYDROCHLOROTHIAZIDE [Concomitant]
  4. FORTEO [Suspect]
     Dosage: 20 UG, DAILY (1/D)
     Dates: end: 20110812
  5. FORTEO [Suspect]
     Indication: OSTEOPOROSIS
     Dosage: 20 UG, DAILY (1/D)
     Route: 065
     Dates: start: 20100405
  6. CALCIUM CARBONATE [Concomitant]
     Indication: MINERAL SUPPLEMENTATION
  7. CITRACAL + D [Concomitant]
  8. LISINOPRIL [Concomitant]
     Dosage: 20 MG, QD

REACTIONS (4)
  - DIZZINESS [None]
  - RENAL FAILURE CHRONIC [None]
  - BLOOD CALCIUM INCREASED [None]
  - FEELING ABNORMAL [None]
